FAERS Safety Report 5680204-0 (Version None)
Quarter: 2008Q1

REPORT INFORMATION
  Report Type: 
  Country: None (occurrence: None)
  Receive Date: 20080326
  Receipt Date: 20080317
  Transmission Date: 20080703
  Serious: Yes (Hospitalization, Other)
  Sender: FDA-Public Use
  Company Number: PHBS2008US03526

PATIENT
  Age: 57 Year
  Sex: Male

DRUGS (5)
  1. NEORAL [Suspect]
     Indication: HEART TRANSPLANT
     Route: 065
  2. MYCOPHENOLATE MOFETIL [Suspect]
     Indication: HEART TRANSPLANT
     Route: 065
  3. PREDNISONE TAB [Suspect]
     Indication: HEART TRANSPLANT
     Route: 065
  4. VALGANCICLOVIR HCL [Concomitant]
     Indication: ANTIVIRAL PROPHYLAXIS
  5. SULFAMETHOXAZOLE AND TRIMETHOPRIM [Concomitant]
     Indication: TOXOPLASMOSIS PROPHYLAXIS

REACTIONS (14)
  - CHILLS [None]
  - FUNGAL SKIN INFECTION [None]
  - GANGRENE [None]
  - PERIPHERAL EMBOLISM [None]
  - PSEUDOMONAS INFECTION [None]
  - PURULENT DISCHARGE [None]
  - PYREXIA [None]
  - RASH [None]
  - RASH PAPULAR [None]
  - RASH PUSTULAR [None]
  - RENAL FAILURE [None]
  - SCAB [None]
  - SKIN ULCER [None]
  - TOE AMPUTATION [None]
